FAERS Safety Report 5601897-X (Version None)
Quarter: 2008Q1

REPORT INFORMATION
  Report Type: 
  Country: None (occurrence: None)
  Receive Date: 20080109
  Receipt Date: 20061211
  Transmission Date: 20080703
  Serious: Yes (Life-Threatening, Hospitalization)
  Sender: FDA-Public Use
  Company Number: 061211-0001102

PATIENT
  Age: 16 Year
  Sex: Female

DRUGS (39)
  1. DACTINOMYCIN [Suspect]
     Indication: FIBROSARCOMA
     Dosage: 2300 UG;QD;IV ; 2300 UG;QD; IV ; 2300 UG;QD;IV ; 2300 UG;QD;IV ; 2300 UG;QD;IV
     Route: 042
     Dates: start: 20060825, end: 20060825
  2. DACTINOMYCIN [Suspect]
     Indication: FIBROSARCOMA
     Dosage: 2300 UG;QD;IV ; 2300 UG;QD; IV ; 2300 UG;QD;IV ; 2300 UG;QD;IV ; 2300 UG;QD;IV
     Route: 042
     Dates: start: 20060915, end: 20060915
  3. DACTINOMYCIN [Suspect]
     Indication: FIBROSARCOMA
     Dosage: 2300 UG;QD;IV ; 2300 UG;QD; IV ; 2300 UG;QD;IV ; 2300 UG;QD;IV ; 2300 UG;QD;IV
     Route: 042
     Dates: start: 20061006, end: 20061006
  4. DACTINOMYCIN [Suspect]
     Indication: FIBROSARCOMA
     Dosage: 2300 UG;QD;IV ; 2300 UG;QD; IV ; 2300 UG;QD;IV ; 2300 UG;QD;IV ; 2300 UG;QD;IV
     Route: 042
     Dates: start: 20061026, end: 20061026
  5. DACTINOMYCIN [Suspect]
     Indication: FIBROSARCOMA
     Dosage: 2300 UG;QD;IV ; 2300 UG;QD; IV ; 2300 UG;QD;IV ; 2300 UG;QD;IV ; 2300 UG;QD;IV
     Route: 042
     Dates: start: 20061117, end: 20061117
  6. CAP APREPITANT [Suspect]
     Indication: PROPHYLAXIS OF NAUSEA AND VOMITING
     Dosage: SEE IMAGE
     Route: 048
     Dates: start: 20060623, end: 20060623
  7. CAP APREPITANT [Suspect]
     Indication: PROPHYLAXIS OF NAUSEA AND VOMITING
     Dosage: SEE IMAGE
     Route: 048
     Dates: start: 20060624, end: 20060624
  8. CAP APREPITANT [Suspect]
     Indication: PROPHYLAXIS OF NAUSEA AND VOMITING
     Dosage: SEE IMAGE
     Route: 048
     Dates: start: 20060714, end: 20060714
  9. CAP APREPITANT [Suspect]
     Indication: PROPHYLAXIS OF NAUSEA AND VOMITING
     Dosage: SEE IMAGE
     Route: 048
     Dates: start: 20060715, end: 20060715
  10. CAP APREPITANT [Suspect]
     Indication: PROPHYLAXIS OF NAUSEA AND VOMITING
     Dosage: SEE IMAGE
     Route: 048
     Dates: start: 20060804, end: 20060804
  11. CAP APREPITANT [Suspect]
     Indication: PROPHYLAXIS OF NAUSEA AND VOMITING
     Dosage: SEE IMAGE
     Route: 048
     Dates: start: 20060805, end: 20060805
  12. CAP APREPITANT [Suspect]
     Indication: PROPHYLAXIS OF NAUSEA AND VOMITING
     Dosage: SEE IMAGE
     Route: 048
     Dates: start: 20060825, end: 20060825
  13. CAP APREPITANT [Suspect]
     Indication: PROPHYLAXIS OF NAUSEA AND VOMITING
     Dosage: SEE IMAGE
     Route: 048
     Dates: start: 20060826, end: 20060826
  14. CAP APREPITANT [Suspect]
     Indication: PROPHYLAXIS OF NAUSEA AND VOMITING
     Dosage: SEE IMAGE
     Route: 048
     Dates: start: 20060915, end: 20060915
  15. CAP APREPITANT [Suspect]
     Indication: PROPHYLAXIS OF NAUSEA AND VOMITING
     Dosage: SEE IMAGE
     Route: 048
     Dates: start: 20060916, end: 20060916
  16. CAP APREPITANT [Suspect]
     Indication: PROPHYLAXIS OF NAUSEA AND VOMITING
     Dosage: SEE IMAGE
     Route: 048
     Dates: start: 20061006, end: 20061006
  17. CAP APREPITANT [Suspect]
     Indication: PROPHYLAXIS OF NAUSEA AND VOMITING
     Dosage: SEE IMAGE
     Route: 048
     Dates: start: 20061007, end: 20061007
  18. CAP APREPITANT [Suspect]
     Indication: PROPHYLAXIS OF NAUSEA AND VOMITING
     Dosage: SEE IMAGE
     Route: 048
     Dates: start: 20061026, end: 20061026
  19. CAP APREPITANT [Suspect]
     Indication: PROPHYLAXIS OF NAUSEA AND VOMITING
     Dosage: SEE IMAGE
     Route: 048
     Dates: start: 20061027, end: 20061029
  20. CAP APREPITANT [Suspect]
     Indication: PROPHYLAXIS OF NAUSEA AND VOMITING
     Dosage: SEE IMAGE
     Route: 048
     Dates: start: 20061117, end: 20061117
  21. CAP APREPITANT [Suspect]
     Indication: PROPHYLAXIS OF NAUSEA AND VOMITING
     Dosage: SEE IMAGE
     Route: 048
     Dates: start: 20061118, end: 20061120
  22. VINCRISTINE SULFATE [Suspect]
     Indication: FIBROSARCOMA
     Dosage: 2 MG;QD;IV ; 2 MG;QD;IV ; 2 MG;QD;IV ; 2 MG;QD;IV ; 2 MG;QD;IV ; 2 MG;QD;IV ; 2 MG;QD;IV
     Route: 042
     Dates: start: 20060623, end: 20060623
  23. VINCRISTINE SULFATE [Suspect]
     Indication: FIBROSARCOMA
     Dosage: 2 MG;QD;IV ; 2 MG;QD;IV ; 2 MG;QD;IV ; 2 MG;QD;IV ; 2 MG;QD;IV ; 2 MG;QD;IV ; 2 MG;QD;IV
     Route: 042
     Dates: start: 20060714, end: 20060714
  24. VINCRISTINE SULFATE [Suspect]
     Indication: FIBROSARCOMA
     Dosage: 2 MG;QD;IV ; 2 MG;QD;IV ; 2 MG;QD;IV ; 2 MG;QD;IV ; 2 MG;QD;IV ; 2 MG;QD;IV ; 2 MG;QD;IV
     Route: 042
     Dates: start: 20060804, end: 20060804
  25. VINCRISTINE SULFATE [Suspect]
     Indication: FIBROSARCOMA
     Dosage: 2 MG;QD;IV ; 2 MG;QD;IV ; 2 MG;QD;IV ; 2 MG;QD;IV ; 2 MG;QD;IV ; 2 MG;QD;IV ; 2 MG;QD;IV
     Route: 042
     Dates: start: 20060825, end: 20060825
  26. VINCRISTINE SULFATE [Suspect]
     Indication: FIBROSARCOMA
     Dosage: 2 MG;QD;IV ; 2 MG;QD;IV ; 2 MG;QD;IV ; 2 MG;QD;IV ; 2 MG;QD;IV ; 2 MG;QD;IV ; 2 MG;QD;IV
     Route: 042
     Dates: start: 20060915, end: 20060915
  27. VINCRISTINE SULFATE [Suspect]
     Indication: FIBROSARCOMA
     Dosage: 2 MG;QD;IV ; 2 MG;QD;IV ; 2 MG;QD;IV ; 2 MG;QD;IV ; 2 MG;QD;IV ; 2 MG;QD;IV ; 2 MG;QD;IV
     Route: 042
     Dates: start: 20061006, end: 20061006
  28. VINCRISTINE SULFATE [Suspect]
     Indication: FIBROSARCOMA
     Dosage: 2 MG;QD;IV ; 2 MG;QD;IV ; 2 MG;QD;IV ; 2 MG;QD;IV ; 2 MG;QD;IV ; 2 MG;QD;IV ; 2 MG;QD;IV
     Route: 042
     Dates: start: 20061026, end: 20061026
  29. VINCRISTINE SULFATE [Suspect]
     Indication: FIBROSARCOMA
     Dosage: 2 MG;QD;IV ; 2 MG;QD;IV ; 2 MG;QD;IV ; 2 MG;QD;IV ; 2 MG;QD;IV ; 2 MG;QD;IV ; 2 MG;QD;IV
     Route: 042
     Dates: start: 20061117, end: 20061117
  30. CYCLOPHOSPHAMIDE [Suspect]
     Indication: FIBROSARCOMA
     Dosage: SEE IMAGE
     Route: 042
     Dates: start: 20060623, end: 20060623
  31. CYCLOPHOSPHAMIDE [Suspect]
     Indication: FIBROSARCOMA
     Dosage: SEE IMAGE
     Route: 042
     Dates: start: 20060714, end: 20060714
  32. CYCLOPHOSPHAMIDE [Suspect]
     Indication: FIBROSARCOMA
     Dosage: SEE IMAGE
     Route: 042
     Dates: start: 20060804, end: 20060804
  33. CYCLOPHOSPHAMIDE [Suspect]
     Indication: FIBROSARCOMA
     Dosage: SEE IMAGE
     Route: 042
     Dates: start: 20060825, end: 20060825
  34. CYCLOPHOSPHAMIDE [Suspect]
     Indication: FIBROSARCOMA
     Dosage: SEE IMAGE
     Route: 042
     Dates: start: 20060915, end: 20060915
  35. CYCLOPHOSPHAMIDE [Suspect]
     Indication: FIBROSARCOMA
     Dosage: SEE IMAGE
     Route: 042
     Dates: start: 20061006, end: 20061006
  36. CYCLOPHOSPHAMIDE [Suspect]
     Indication: FIBROSARCOMA
     Dosage: SEE IMAGE
     Route: 042
     Dates: start: 20061026, end: 20061026
  37. CYCLOPHOSPHAMIDE [Suspect]
     Indication: FIBROSARCOMA
     Dosage: SEE IMAGE
     Route: 042
     Dates: start: 20061117, end: 20061117
  38. DECADRON [Concomitant]
  39. ONDANSETRON [Concomitant]

REACTIONS (1)
  - FEBRILE NEUTROPENIA [None]
